FAERS Safety Report 9938627 (Version 1)
Quarter: 2014Q1

REPORT INFORMATION
  Report Type: Spontaneous
  Country: BR (occurrence: BR)
  Receive Date: 20140303
  Receipt Date: 20140303
  Transmission Date: 20141002
  Serious: Yes (Other)
  Sender: FDA-Public Use
  Company Number: BR-JNJFOC-20140211550

PATIENT
  Age: 57 Year
  Sex: Female

DRUGS (10)
  1. RISPERDAL [Suspect]
     Indication: PRODUCT USED FOR UNKNOWN INDICATION
     Route: 048
  2. MOTILIUM [Suspect]
     Indication: CHOLECYSTECTOMY
     Route: 065
  3. CHAMPIX [Suspect]
     Indication: SMOKING CESSATION THERAPY
     Route: 065
     Dates: start: 2013
  4. CHLORPROMAZINE [Concomitant]
     Indication: NERVOUS SYSTEM DISORDER
     Route: 065
  5. LORAZEPAM [Concomitant]
     Indication: NERVOUS SYSTEM DISORDER
     Route: 065
  6. CITALOPRAM [Concomitant]
     Route: 065
  7. CLOPINE [Concomitant]
     Indication: CARDIOVASCULAR DISORDER
     Route: 065
  8. CILOSTAZOL [Concomitant]
     Indication: CARDIOVASCULAR DISORDER
     Route: 065
  9. ACETYLSALICYLIC ACID [Concomitant]
     Indication: CARDIOVASCULAR DISORDER
     Route: 065
  10. PROMETHAZINE [Concomitant]
     Indication: NERVOUS SYSTEM DISORDER
     Route: 065

REACTIONS (9)
  - Schizophrenia [Unknown]
  - Depression [Recovered/Resolved]
  - Diabetes mellitus [Unknown]
  - Nervous system disorder [Unknown]
  - Hypertension [Unknown]
  - Arrhythmia [Unknown]
  - Galactorrhoea [Unknown]
  - Cardiac discomfort [Unknown]
  - Gastric disorder [Unknown]
